FAERS Safety Report 6073890-7 (Version None)
Quarter: 2009Q1

REPORT INFORMATION
  Report Type: 
  Country: None (occurrence: None)
  Receive Date: 20090211
  Receipt Date: 20090205
  Transmission Date: 20090719
  Serious: Yes (Life-Threatening, Hospitalization)
  Sender: FDA-Public Use
  Company Number: US-MERCK-0902USA00895

PATIENT
  Age: 16 Year
  Sex: Female

DRUGS (3)
  1. SINGULAIR [Suspect]
     Route: 048
     Dates: start: 20070601, end: 20081201
  2. PROZAC [Concomitant]
     Route: 065
  3. RISPERDAL [Concomitant]
     Route: 065

REACTIONS (6)
  - DEPRESSION [None]
  - DISTURBANCE IN SOCIAL BEHAVIOUR [None]
  - MOOD ALTERED [None]
  - SOCIAL AVOIDANT BEHAVIOUR [None]
  - SUICIDE ATTEMPT [None]
  - TEARFULNESS [None]
